FAERS Safety Report 8303646 (Version 3)
Quarter: 2012Q4

REPORT INFORMATION
  Report Type: 
  Country: US (occurrence: US)
  Receive Date: 20111220
  Receipt Date: 20121211
  Transmission Date: 20130627
  Serious: Yes (Hospitalization, Other)
  Sender: FDA-Public Use
  Company Number: US-ELI_LILLY_AND_COMPANY-US201011007342

PATIENT
  Sex: Male
  Weight: 79.37 kg

DRUGS (17)
  1. FORTEO [Suspect]
     Indication: OSTEOPOROSIS
     Dosage: 20 ug, qd
     Route: 065
     Dates: start: 20101122
  2. FORTEO [Suspect]
     Dosage: 20 ug, qd
  3. FORTEO [Suspect]
     Dosage: 20 ug, qd
  4. FORTEO [Suspect]
     Dosage: 20 ug, qd
     Dates: end: 201211
  5. PROCRIT [Concomitant]
     Dosage: UNK
  6. VITAMINS [Concomitant]
  7. MELOXICAM [Concomitant]
     Dosage: 12 ml, unknown
  8. NAMENDA [Concomitant]
     Dosage: 10 mg, bid
  9. CALCIUM [Concomitant]
     Dosage: 600 mg, UNK
  10. OMEPRAZOLE [Concomitant]
     Dosage: 20 mg, unknown
  11. FINASTERIDE [Concomitant]
     Dosage: 5 mg, unknown
  12. GALANTAMINE [Concomitant]
     Dosage: 12 mg, bid
  13. GABAPENTIN [Concomitant]
     Dosage: 30 mg, bid
  14. CLONAZEPAM [Concomitant]
     Dosage: .5 mg, qd
  15. VITAMIN D NOS [Concomitant]
     Dosage: 50000 u, monthly (1/M)
  16. OXYBUTYNIN [Concomitant]
     Dosage: 10 mg, unknown
  17. BABY ASPIRIN [Concomitant]

REACTIONS (17)
  - Sick sinus syndrome [Recovered/Resolved]
  - Hypotension [Recovered/Resolved]
  - Cardiovascular disorder [Unknown]
  - Restless legs syndrome [Unknown]
  - Blister [Unknown]
  - Pain in extremity [Unknown]
  - Discomfort [Unknown]
  - Abdominal discomfort [Unknown]
  - Oedema peripheral [Unknown]
  - Joint swelling [Unknown]
  - Constipation [Not Recovered/Not Resolved]
  - Arthralgia [Unknown]
  - Asthenia [Not Recovered/Not Resolved]
  - Pain [Unknown]
  - Fall [Recovered/Resolved]
  - Head injury [Recovered/Resolved]
  - Joint injury [Recovered/Resolved]
